FAERS Safety Report 8805761 (Version 3)
Quarter: 2012Q4

REPORT INFORMATION
  Report Type: 
  Country: DE (occurrence: DE)
  Receive Date: 20120924
  Receipt Date: 20121122
  Transmission Date: 20130627
  Serious: Yes (Hospitalization)
  Sender: FDA-Public Use
  Company Number: DE-AMGEN-DEUSP2012059861

PATIENT
  Age: 68 Year
  Sex: Female
  Weight: 86 kg

DRUGS (5)
  1. XGEVA [Suspect]
     Indication: METASTASES TO BONE
     Dosage: UNK, q4wk
     Route: 058
     Dates: start: 20120626
  2. XGEVA [Suspect]
     Indication: RENAL CELL CARCINOMA
  3. L-THYROXIN [Concomitant]
     Dosage: 100 DF, UNK
  4. BISOPROLOL [Concomitant]
  5. NOVALGIN                           /06276704/ [Concomitant]
     Dosage: UNK
     Dates: start: 201206, end: 201207

REACTIONS (2)
  - Hepatotoxicity [Recovered/Resolved]
  - Hepatic necrosis [Recovered/Resolved]
